FAERS Safety Report 5879850-0 (Version None)
Quarter: 2008Q3

REPORT INFORMATION
  Report Type: 
  Country: None (occurrence: None)
  Receive Date: 20080912
  Receipt Date: 20080901
  Transmission Date: 20090109
  Serious: Yes (Death)
  Sender: FDA-Public Use
  Company Number: US-ROCHE-584450

PATIENT
  Sex: Female

DRUGS (1)
  1. CAPECITABINE [Suspect]
     Dosage: SCHEDULED DOSE DAYS 1-14 OF A 21 DAY CYCLE
     Route: 048

REACTIONS (1)
  - NEUTROPENIC SEPSIS [None]
